FAERS Safety Report 4512407-2 (Version None)
Quarter: 2004Q4

REPORT INFORMATION
  Report Type: 
  Country: None (occurrence: None)
  Receive Date: 20041124
  Receipt Date: 20041115
  Transmission Date: 20050328
  Serious: Yes (Other)
  Sender: FDA-Public Use
  Company Number: 2004093779

PATIENT
  Age: 10 Month
  Sex: Male

DRUGS (2)
  1. CHILDREN'S PEDIACARE MULTI-SYMPTOM COLD [Suspect]
     Indication: COUGH
     Dosage: 1/2 OF A TSP PRN, ORAL
     Route: 048
     Dates: start: 20040901, end: 20041109
  2. BENADRYL [Concomitant]

REACTIONS (1)
  - ANAPHYLACTIC SHOCK [None]
